FAERS Safety Report 16120139 (Version 1)
Quarter: 2019Q1

REPORT INFORMATION
  Report Type: Spontaneous
  Country: US (occurrence: US)
  Receive Date: 20190326
  Receipt Date: 20190326
  Transmission Date: 20190418
  Serious: No
  Sender: FDA-Public Use
  Company Number: US-GILEAD-2019-0398315

PATIENT
  Age: 46 Year
  Sex: Male

DRUGS (1)
  1. TRUVADA [Suspect]
     Active Substance: EMTRICITABINE\TENOFOVIR DISOPROXIL FUMARATE
     Indication: PROPHYLAXIS AGAINST HIV INFECTION
     Dosage: UNK
     Route: 065

REACTIONS (5)
  - Abdominal pain [Not Recovered/Not Resolved]
  - Vertigo positional [Not Recovered/Not Resolved]
  - Haematochezia [Unknown]
  - Dizziness [Not Recovered/Not Resolved]
  - Abdominal pain lower [Unknown]

NARRATIVE: CASE EVENT DATE: 201811
